FAERS Safety Report 22349098 (Version 2)
Quarter: 2023Q2

REPORT INFORMATION
  Report Type: Report from Study
  Country: US (occurrence: US)
  Receive Date: 20230522
  Receipt Date: 20230524
  Transmission Date: 20230721
  Serious: Yes (Hospitalization, Other)
  Sender: FDA-Public Use
  Company Number: US-002147023-NVSC2023US114555

PATIENT
  Sex: Male

DRUGS (1)
  1. LEQVIO [Suspect]
     Active Substance: INCLISIRAN SODIUM
     Indication: Product used for unknown indication
     Dosage: UNK
     Route: 058
     Dates: start: 202304

REACTIONS (5)
  - Pneumonia [Unknown]
  - Renal failure [Unknown]
  - Tenderness [Recovered/Resolved]
  - Pain [Recovered/Resolved]
  - Hypoacusis [Unknown]
